FAERS Safety Report 14105457 (Version 1)
Quarter: 2017Q4

REPORT INFORMATION
  Report Type: Spontaneous
  Country: ES (occurrence: ES)
  Receive Date: 20171018
  Receipt Date: 20171018
  Transmission Date: 20180321
  Serious: Yes (Other)
  Sender: FDA-Public Use
  Company Number: ES-GE HEALTHCARE LIFE SCIENCES-2017CSU002081

PATIENT

DRUGS (1)
  1. VISIPAQUE [Suspect]
     Active Substance: IODIXANOL
     Indication: COLON CANCER
     Dosage: UNK, SINGLE
     Route: 065

REACTIONS (2)
  - Eyelid oedema [Recovered/Resolved]
  - Conjunctivitis [Recovered/Resolved]
